FAERS Safety Report 25358452 (Version 1)
Quarter: 2025Q2

REPORT INFORMATION
  Report Type: Spontaneous
  Country: JP (occurrence: JP)
  Receive Date: 20250526
  Receipt Date: 20250526
  Transmission Date: 20250717
  Serious: Yes (Hospitalization, Other)
  Sender: ARDELYX
  Company Number: JP-ARDELYX-2025ARDX003803

PATIENT
  Age: 63 Year

DRUGS (3)
  1. TENAPANOR HYDROCHLORIDE [Suspect]
     Active Substance: TENAPANOR HYDROCHLORIDE
     Indication: Product used for unknown indication
     Route: 048
  2. BIXALOMER [Concomitant]
     Active Substance: BIXALOMER
     Indication: Product used for unknown indication
     Route: 065
  3. FOSRENOL [Concomitant]
     Active Substance: LANTHANUM CARBONATE
     Indication: Product used for unknown indication
     Route: 065

REACTIONS (1)
  - Cerebral infarction [Unknown]
